FAERS Safety Report 20093141 (Version 1)
Quarter: 2021Q4

REPORT INFORMATION
  Report Type: Spontaneous
  Country: CN (occurrence: None)
  Receive Date: 20211120
  Receipt Date: 20211120
  Transmission Date: 20220303
  Serious: Yes (Other)
  Sender: FDA-Public Use
  Company Number: CN-ROCHE-2958532

PATIENT
  Age: 66 Year
  Sex: Male

DRUGS (7)
  1. BEVACIZUMAB [Suspect]
     Active Substance: BEVACIZUMAB
     Indication: Rectal adenocarcinoma
     Dosage: MFOLFIRI+BEV
     Route: 065
     Dates: start: 20210408
  2. LEUCOVORIN CALCIUM [Concomitant]
     Active Substance: LEUCOVORIN CALCIUM
     Indication: Rectal adenocarcinoma
     Dosage: MFOLFOX6
     Dates: start: 20200103
  3. LEUCOVORIN CALCIUM [Concomitant]
     Active Substance: LEUCOVORIN CALCIUM
     Dosage: MFOLFIRI+BEV
     Dates: start: 20210408
  4. FLUOROURACIL [Concomitant]
     Active Substance: FLUOROURACIL
     Indication: Rectal adenocarcinoma
     Dosage: MFOLFOX6
     Dates: start: 20200103
  5. FLUOROURACIL [Concomitant]
     Active Substance: FLUOROURACIL
     Dosage: MFOLFIRI+BEV
     Dates: start: 20210408
  6. IRINOTECAN [Concomitant]
     Active Substance: IRINOTECAN
     Indication: Rectal adenocarcinoma
     Dosage: MFOLFIRI+BEV
     Dates: start: 20210408
  7. OXALIPLATIN [Concomitant]
     Active Substance: OXALIPLATIN
     Indication: Rectal adenocarcinoma
     Dosage: MFOLFOX6
     Dates: start: 20200103

REACTIONS (1)
  - Renal impairment [Unknown]
